FAERS Safety Report 16268855 (Version 1)
Quarter: 2019Q2

REPORT INFORMATION
  Report Type: Spontaneous
  Country: KR (occurrence: KR)
  Receive Date: 20190503
  Receipt Date: 20190503
  Transmission Date: 20190711
  Serious: Yes (Life-Threatening, Other)
  Sender: FDA-Public Use
  Company Number: KR-ACCORD-125627

PATIENT
  Age: 62 Year
  Sex: Female

DRUGS (3)
  1. CISPLATIN. [Suspect]
     Active Substance: CISPLATIN
     Indication: BILE DUCT SQUAMOUS CELL CARCINOMA
  2. FLUOROURACIL. [Suspect]
     Active Substance: FLUOROURACIL
     Indication: BILE DUCT SQUAMOUS CELL CARCINOMA
  3. HEPARIN [Concomitant]
     Active Substance: HEPARIN SODIUM
     Indication: VENA CAVA THROMBOSIS

REACTIONS (3)
  - Thrombocytopenia [Unknown]
  - Pancytopenia [Unknown]
  - Pyrexia [Unknown]
